FAERS Safety Report 20348286 (Version 1)
Quarter: 2022Q1

REPORT INFORMATION
  Report Type: Spontaneous
  Country: US (occurrence: US)
  Receive Date: 20220119
  Receipt Date: 20220119
  Transmission Date: 20220423
  Serious: No
  Sender: FDA-Public Use
  Company Number: US-ELI_LILLY_AND_COMPANY-US202201004528

PATIENT
  Sex: Female

DRUGS (6)
  1. TRULICITY [Suspect]
     Active Substance: DULAGLUTIDE
     Indication: Type 2 diabetes mellitus
     Dosage: UNK UNK, UNKNOWN
     Route: 065
  2. BASAGLAR [Suspect]
     Active Substance: INSULIN GLARGINE
     Indication: Type 2 diabetes mellitus
     Dosage: 30 U, DAILY (AT NIGHT)
     Route: 058
     Dates: start: 202101
  3. BASAGLAR [Suspect]
     Active Substance: INSULIN GLARGINE
     Indication: Type 2 diabetes mellitus
     Dosage: 30 U, DAILY (AT NIGHT)
     Route: 058
     Dates: start: 202101
  4. BASAGLAR [Suspect]
     Active Substance: INSULIN GLARGINE
     Dosage: 30 U, DAILY (AT NIGHT)
     Route: 058
  5. BASAGLAR [Suspect]
     Active Substance: INSULIN GLARGINE
     Dosage: 30 U, DAILY (AT NIGHT)
     Route: 058
  6. NOVOLOG [Concomitant]
     Active Substance: INSULIN ASPART
     Indication: Type 2 diabetes mellitus
     Dosage: 10 U, TID (WITH EACH MEAL)
     Route: 065

REACTIONS (6)
  - Feeding disorder [Not Recovered/Not Resolved]
  - Glycosylated haemoglobin increased [Recovered/Resolved]
  - Blood glucose increased [Unknown]
  - Injection site pain [Recovered/Resolved]
  - Product dose omission issue [Unknown]
  - Drug ineffective [Unknown]
